FAERS Safety Report 6231791-5 (Version None)
Quarter: 2009Q2

REPORT INFORMATION
  Report Type: 
  Country: None (occurrence: None)
  Receive Date: 20090616
  Receipt Date: 20090609
  Transmission Date: 20091009
  Serious: Yes (Life-Threatening, Hospitalization)
  Sender: FDA-Public Use
  Company Number: PHHY2009NO23417

PATIENT
  Sex: Female

DRUGS (11)
  1. STALEVO 100 [Suspect]
     Indication: PARKINSON'S DISEASE
     Dosage: 150/7.5/200 (6 IN 1 DAY)
     Route: 048
     Dates: start: 20090217, end: 20090502
  2. BUPRENORPHINE HCL [Concomitant]
     Dosage: 20 MCG/T (1 IN 1 W)
  3. ISOPTIN [Concomitant]
     Indication: ATRIAL FIBRILLATION
     Dosage: 120 MG (120 MG,1 IN 1 DAY)
     Route: 048
  4. PARACETAMOL [Concomitant]
     Dosage: 4 G (1 G, 4 IN 1 DAY)
  5. ZON [Concomitant]
     Dosage: 2 IN 1 DAY
     Route: 061
  6. ALOPAM [Concomitant]
     Dosage: 10 MG, 2 IN 1 DAY
  7. LAXOBERAL [Concomitant]
     Dosage: 5-10 DROPS, PRN
  8. OMEPRAZOL [Concomitant]
     Dosage: 20 MG, QD
     Route: 048
  9. OXYNORM [Concomitant]
     Indication: PAIN
     Dosage: 20 ML, BID
  10. DUPHALAC [Concomitant]
     Dosage: 20 ML, BID
     Route: 048
  11. MAREVAN [Concomitant]
     Indication: ATRIAL FIBRILLATION
     Dosage: UNK
     Route: 048

REACTIONS (1)
  - GASTRIC PERFORATION [None]
